FAERS Safety Report 16019834 (Version 1)
Quarter: 2019Q1

REPORT INFORMATION
  Report Type: Spontaneous
  Country: US (occurrence: US)
  Receive Date: 20190228
  Receipt Date: 20190228
  Transmission Date: 20190418
  Serious: Yes (Other)
  Sender: FDA-Public Use
  Company Number: US-TEVA-2019-US-1017636

PATIENT
  Sex: Female

DRUGS (1)
  1. LABETALOL [Suspect]
     Active Substance: LABETALOL\LABETALOL HYDROCHLORIDE
     Indication: HYPERTENSION
     Dosage: ONE AND A HALF TABLETS
     Route: 065

REACTIONS (7)
  - Pruritus [Unknown]
  - Blister [Recovered/Resolved]
  - Pain [Unknown]
  - Skin disorder [Recovered/Resolved]
  - Stevens-Johnson syndrome [Unknown]
  - Wrong technique in product usage process [Unknown]
  - Tachycardia [Recovered/Resolved]

NARRATIVE: CASE EVENT DATE: 201901
